FAERS Safety Report 20069742 (Version 3)
Quarter: 2021Q4

REPORT INFORMATION
  Report Type: Report from Study
  Country: ES (occurrence: ES)
  Receive Date: 20211115
  Receipt Date: 20211119
  Transmission Date: 20220303
  Serious: Yes (Hospitalization, Other)
  Sender: FDA-Public Use
  Company Number: ES-BRISTOL-MYERS SQUIBB COMPANY-BMS-2021-119757

PATIENT
  Age: 64 Year
  Sex: Male
  Weight: 80 kg

DRUGS (16)
  1. IPILIMUMAB [Suspect]
     Active Substance: IPILIMUMAB
     Indication: Hepatocellular carcinoma
     Dosage: 100 MILLILITER
     Route: 065
     Dates: start: 20210705, end: 20210705
  2. NIVOLUMAB [Suspect]
     Active Substance: NIVOLUMAB
     Indication: Hepatocellular carcinoma
     Dosage: 100 MILLILITER
     Route: 065
     Dates: start: 20210705, end: 20210705
  3. PLACEBO [Suspect]
     Active Substance: UNSPECIFIED INGREDIENT
     Indication: Hepatocellular carcinoma
     Dosage: 100 MILLILITER
     Route: 065
     Dates: start: 20210705, end: 20210705
  4. IPILIMUMAB [Suspect]
     Active Substance: IPILIMUMAB
     Dosage: 100 MILLILITER
     Route: 065
     Dates: start: 20211025, end: 20211025
  5. NIVOLUMAB [Suspect]
     Active Substance: NIVOLUMAB
     Dosage: 100 MILLILITER
     Route: 065
     Dates: start: 20211025, end: 20211025
  6. PLACEBO [Suspect]
     Active Substance: UNSPECIFIED INGREDIENT
     Dosage: 100 MILLILITER
     Route: 065
     Dates: start: 20211025, end: 20211025
  7. DOXORUBICIN [Suspect]
     Active Substance: DOXORUBICIN
     Indication: Hepatocellular carcinoma
     Dosage: 150 MILLIGRAM
     Route: 065
     Dates: start: 20210712, end: 20210712
  8. DOXORUBICIN [Suspect]
     Active Substance: DOXORUBICIN
     Dosage: 12 MILLIGRAM
     Route: 065
     Dates: start: 20211015, end: 20211015
  9. PROPRANOLOL HYDROCHLORIDE [Concomitant]
     Active Substance: PROPRANOLOL HYDROCHLORIDE
     Indication: Product used for unknown indication
     Dosage: 100 MILLIGRAM
     Route: 065
     Dates: start: 20210201, end: 20211107
  10. ASCORBIC ACID\BIOTIN\CALCIUM PANTOTHENATE\CYANOCOBALAMIN\FOLIC ACID\NI [Concomitant]
     Active Substance: ASCORBIC ACID\BIOTIN\CALCIUM PANTOTHENATE\CYANOCOBALAMIN\FOLIC ACID\NIACINAMIDE\PYRIDOXINE HYDROCHLO
     Indication: Product used for unknown indication
     Dosage: 1 UNITS NOT SPECIFIED
     Route: 065
     Dates: start: 20210201
  11. FERROUS SULFATE [Concomitant]
     Active Substance: FERROUS SULFATE
     Indication: Prophylaxis
     Dosage: 105 MILLIGRAM
     Route: 065
     Dates: start: 20210503
  12. OMEPRAZOLE [Concomitant]
     Active Substance: OMEPRAZOLE
     Indication: Prophylaxis
     Dosage: 20 MILLIGRAM
     Route: 065
     Dates: start: 20210525
  13. EPLERENONE [Concomitant]
     Active Substance: EPLERENONE
     Indication: Product used for unknown indication
     Dosage: 25 MILLIGRAM
     Route: 065
     Dates: start: 20210705
  14. METAMIZOLE [Concomitant]
     Active Substance: METAMIZOLE
     Indication: Product used for unknown indication
     Dosage: 1150 MILLIGRAM
     Route: 065
     Dates: start: 20210712, end: 20211107
  15. ACETAMINOPHEN [Concomitant]
     Active Substance: ACETAMINOPHEN
     Indication: Product used for unknown indication
     Dosage: 1 UNITS NOT SPECIFIED
     Route: 065
     Dates: start: 20211022
  16. SODIUM BICARBONATE [Concomitant]
     Active Substance: SODIUM BICARBONATE
     Indication: Product used for unknown indication
     Dosage: 500 UNIT NOT SPECIFIED
     Route: 065
     Dates: start: 20211108

REACTIONS (1)
  - Tubulointerstitial nephritis [Recovered/Resolved]

NARRATIVE: CASE EVENT DATE: 20211108
